FAERS Safety Report 12115774 (Version 2)
Quarter: 2016Q2

REPORT INFORMATION
  Report Type: Spontaneous
  Country: US (occurrence: US)
  Receive Date: 20160225
  Receipt Date: 20160419
  Transmission Date: 20160815
  Serious: No
  Sender: FDA-Public Use
  Company Number: US-PFIZER INC-2016111895

PATIENT
  Age: 48 Year
  Sex: Female
  Weight: 79 kg

DRUGS (4)
  1. AROMASIN [Suspect]
     Active Substance: EXEMESTANE
     Indication: BREAST CANCER
     Dosage: 25 MG, TABLET, ONE EVERYDAY
     Route: 048
     Dates: start: 20121016, end: 20130215
  2. AROMASIN [Suspect]
     Active Substance: EXEMESTANE
     Dosage: 25 MG, TABLET, ONE EVERYDAY
     Route: 048
     Dates: start: 201512
  3. LUPRON [Suspect]
     Active Substance: LEUPROLIDE ACETATE
     Indication: PREMATURE MENOPAUSE
     Dosage: 1 DF, MONTHLY
  4. AROMASIN [Suspect]
     Active Substance: EXEMESTANE
     Dosage: 25 MG, TABLET, ONE EVERYDAY
     Route: 048
     Dates: start: 201501

REACTIONS (3)
  - Disease progression [Unknown]
  - Breast cancer [Unknown]
  - Bone pain [Unknown]
